FAERS Safety Report 9890760 (Version 2)
Quarter: 2014Q3

REPORT INFORMATION
  Report Type: Spontaneous
  Country: IT (occurrence: None)
  Receive Date: 20140210
  Receipt Date: 20140716
  Transmission Date: 20150326
  Serious: Yes (Hospitalization, Other)
  Sender: FDA-Public Use
  Company Number: AG-2014-000041

PATIENT
  Age: 79 Year
  Sex: Female

DRUGS (1)
  1. LEUKERAN [Suspect]
     Active Substance: CHLORAMBUCIL
     Indication: NON-HODGKIN^S LYMPHOMA
     Route: 048
     Dates: end: 20131227

REACTIONS (4)
  - Sopor [None]
  - Aphasia [None]
  - Iatrogenic injury [None]
  - Leukoencephalopathy [None]

NARRATIVE: CASE EVENT DATE: 20131226
